FAERS Safety Report 9433176 (Version 3)
Quarter: 2013Q3

REPORT INFORMATION
  Report Type: Spontaneous
  Country: US (occurrence: US)
  Receive Date: 20130731
  Receipt Date: 20130918
  Transmission Date: 20140515
  Serious: Yes (Hospitalization, Other)
  Sender: FDA-Public Use
  Company Number: US-GILEAD-2013-0079865

PATIENT
  Sex: Male

DRUGS (3)
  1. LETAIRIS [Suspect]
     Indication: PULMONARY ARTERIAL HYPERTENSION
     Dosage: 10 MG, QD
  2. REMODULIN [Concomitant]
  3. ADCIRCA [Concomitant]

REACTIONS (3)
  - Catheter placement [Unknown]
  - Pericarditis [Unknown]
  - Unevaluable event [Unknown]
